FAERS Safety Report 15695053 (Version 1)
Quarter: 2018Q4

REPORT INFORMATION
  Report Type: Spontaneous
  Country: US (occurrence: US)
  Receive Date: 20181126
  Receipt Date: 20181126
  Transmission Date: 20190205
  Serious: Yes (Hospitalization, Disabling)
  Sender: FDA-Public Use
  Company Number: None

PATIENT
  Age: 55 Year
  Sex: Male
  Weight: 72 kg

DRUGS (2)
  1. CIPRODEX [Suspect]
     Active Substance: CIPROFLOXACIN HYDROCHLORIDE\DEXAMETHASONE
     Indication: EAR INFECTION
     Dosage: ?          QUANTITY:2 DROP(S);?
     Route: 001
     Dates: start: 20171216
  2. CIPRODEX [Suspect]
     Active Substance: CIPROFLOXACIN HYDROCHLORIDE\DEXAMETHASONE
     Indication: SINUSITIS
     Dosage: ?          QUANTITY:2 DROP(S);?
     Route: 001
     Dates: start: 20171216

REACTIONS (3)
  - Toxicity to various agents [None]
  - Anxiety [None]
  - Confusional state [None]

NARRATIVE: CASE EVENT DATE: 20180110
